FAERS Safety Report 10950200 (Version 3)
Quarter: 2015Q4

REPORT INFORMATION
  Report Type: Spontaneous
  Country: US (occurrence: US)
  Receive Date: 20150324
  Receipt Date: 20151215
  Transmission Date: 20160304
  Serious: Yes (Congenital Anomaly, Other)
  Sender: FDA-Public Use
  Company Number: US-ELI_LILLY_AND_COMPANY-US201503005468

PATIENT
  Age: 0 Day

DRUGS (1)
  1. PROZAC [Suspect]
     Active Substance: FLUOXETINE HYDROCHLORIDE
     Indication: PRODUCT USED FOR UNKNOWN INDICATION
     Dosage: UNK, UNKNOWN
     Route: 065

REACTIONS (7)
  - Premature baby [Unknown]
  - Foetal exposure during pregnancy [Unknown]
  - Bradycardia [Unknown]
  - Hypovolaemia [Unknown]
  - Congenital pulmonary hypertension [Unknown]
  - Pulmonary malformation [Unknown]
  - Apnoea [Unknown]

NARRATIVE: CASE EVENT DATE: 20101013
